FAERS Safety Report 22155945 (Version 11)
Quarter: 2024Q4

REPORT INFORMATION
  Report Type: Spontaneous
  Country: US (occurrence: US)
  Receive Date: 20230330
  Receipt Date: 20241028
  Transmission Date: 20250114
  Serious: Yes (Hospitalization)
  Sender: PFIZER
  Company Number: US-PFIZER INC-PV202300054031

PATIENT
  Age: 86 Year
  Sex: Male
  Weight: 81.633 kg

DRUGS (9)
  1. CIBINQO [Suspect]
     Active Substance: ABROCITINIB
     Indication: Dermatitis atopic
     Dosage: 100 MG, 1X/DAY
     Route: 048
  2. CIBINQO [Suspect]
     Active Substance: ABROCITINIB
     Indication: Pruritus
     Dosage: 100 MG, ALTERNATE DAY
     Route: 048
  3. CIBINQO [Suspect]
     Active Substance: ABROCITINIB
     Indication: Neurodermatitis
     Dosage: 100 MG, 1X/DAY
     Route: 048
  4. CIBINQO [Suspect]
     Active Substance: ABROCITINIB
     Indication: Skin abrasion
  5. CIBINQO [Suspect]
     Active Substance: ABROCITINIB
     Indication: Xerosis
  6. CIBINQO [Suspect]
     Active Substance: ABROCITINIB
     Indication: Ecchymosis
  7. CIBINQO [Suspect]
     Active Substance: ABROCITINIB
     Indication: Seborrhoeic keratosis
  8. CIBINQO [Suspect]
     Active Substance: ABROCITINIB
     Indication: Lentigo
  9. CIBINQO [Suspect]
     Active Substance: ABROCITINIB
     Indication: Eczema

REACTIONS (7)
  - Off label use [Unknown]
  - Condition aggravated [Unknown]
  - Hypoacusis [Unknown]
  - Pruritus [Recovered/Resolved]
  - Discomfort [Not Recovered/Not Resolved]
  - Skin lesion [Unknown]
  - Frustration tolerance decreased [Unknown]
